FAERS Safety Report 25321316 (Version 1)
Quarter: 2025Q2

REPORT INFORMATION
  Report Type: Spontaneous
  Country: CH (occurrence: CH)
  Receive Date: 20250515
  Receipt Date: 20250515
  Transmission Date: 20250717
  Serious: Yes (Death, Other)
  Sender: ABBVIE
  Company Number: None

PATIENT
  Age: 55 Year
  Sex: Female

DRUGS (11)
  1. CARIPRAZINE [Suspect]
     Active Substance: CARIPRAZINE
     Indication: Behaviour disorder
     Route: 048
     Dates: start: 202502
  2. CARIPRAZINE [Suspect]
     Active Substance: CARIPRAZINE
     Indication: Behaviour disorder
     Route: 048
     Dates: start: 202011, end: 20250224
  3. Redormin [Concomitant]
     Indication: Product used for unknown indication
     Route: 048
  4. XANAX [Concomitant]
     Active Substance: ALPRAZOLAM
     Indication: Product used for unknown indication
     Route: 048
  5. FLURAZEPAM HYDROCHLORIDE [Concomitant]
     Active Substance: FLURAZEPAM HYDROCHLORIDE
     Indication: Product used for unknown indication
     Route: 048
  6. CHOLECALCIFEROL [Concomitant]
     Active Substance: CHOLECALCIFEROL
     Indication: Product used for unknown indication
     Route: 048
  7. TORSEMIDE [Concomitant]
     Active Substance: TORSEMIDE
     Indication: Product used for unknown indication
     Route: 048
  8. QUETIAPINE [Suspect]
     Active Substance: QUETIAPINE
     Indication: Behaviour disorder
     Dosage: DOSE - 100 MILLIGRAM, ONCE A DAY (QD) (25MG 4 TIMES PER DAY)
     Route: 048
     Dates: start: 202502
  9. QUETIAPINE [Suspect]
     Active Substance: QUETIAPINE
     Indication: Behaviour disorder
     Dosage: DOSE - 325 MILLIGRAM, ONCE A DAY (QD); (150MG-50MG-0-125MG)
     Route: 048
     Dates: end: 20250224
  10. ETHINYL ESTRADIOL\GESTODENE [Suspect]
     Active Substance: ETHINYL ESTRADIOL\GESTODENE
     Indication: Oral contraception
     Route: 048
     Dates: start: 2011, end: 20250224
  11. LEVOTHYROXINE [Concomitant]
     Active Substance: LEVOTHYROXINE
     Indication: Hypothyroidism
     Dosage: DOSE - 1 DOSAGE FORM, ONCE A DAY (QD), (0.05MG AND 0.1MG ALTERNATING)
     Route: 048

REACTIONS (7)
  - Multiple organ dysfunction syndrome [Fatal]
  - Acute hepatic failure [Fatal]
  - Encephalopathy [Fatal]
  - Deep vein thrombosis [Fatal]
  - Pulmonary embolism [Fatal]
  - Respiratory failure [Fatal]
  - Acute kidney injury [Fatal]

NARRATIVE: CASE EVENT DATE: 20250201
